FAERS Safety Report 7035074-5 (Version None)
Quarter: 2010Q4

REPORT INFORMATION
  Report Type: 
  Country: None (occurrence: None)
  Receive Date: 20101008
  Receipt Date: 20070914
  Transmission Date: 20110411
  Serious: Yes (Other)
  Sender: FDA-Public Use
  Company Number: PHBS2007US21807

PATIENT
  Sex: Female

DRUGS (1)
  1. EXJADE [Suspect]
     Dosage: 500 MG, UNK

REACTIONS (3)
  - DIALYSIS [None]
  - DIARRHOEA [None]
  - NEPHRECTOMY [None]
